FAERS Safety Report 21489374 (Version 1)
Quarter: 2022Q4

REPORT INFORMATION
  Report Type: Spontaneous
  Country: US (occurrence: US)
  Receive Date: 20221021
  Receipt Date: 20221021
  Transmission Date: 20230113
  Serious: Yes (Other)
  Sender: FDA-Public Use
  Company Number: US-drreddys-SPO/USA/22/0155924

PATIENT
  Age: 13 Year
  Sex: Female

DRUGS (1)
  1. ZENATANE [Suspect]
     Active Substance: ISOTRETINOIN
     Indication: Product used for unknown indication
     Dosage: RMA ISSUE DATE: 19 APRIL 2022 04:05:15 PM, 25 MAY 2022 04:29:20 PM, 28 JUNE 2022 04:23:32 PM, 02 AUG

REACTIONS (2)
  - Mood swings [Unknown]
  - Suicidal ideation [Unknown]
